FAERS Safety Report 8785317 (Version 2)
Quarter: 2012Q4

REPORT INFORMATION
  Report Type: 
  Country: US (occurrence: US)
  Receive Date: 20120914
  Receipt Date: 20121115
  Transmission Date: 20130627
  Serious: No
  Sender: FDA-Public Use
  Company Number: US-PFIZER INC-2012222662

PATIENT
  Age: 56 Year
  Sex: Female

DRUGS (2)
  1. XALKORI [Suspect]
     Dosage: 250 mg, 2x/day
     Dates: start: 20120813
  2. XALKORI [Suspect]
     Dosage: 250 mg, 2x/day
     Dates: start: 20120813

REACTIONS (3)
  - Disease progression [Unknown]
  - Neoplasm malignant [Unknown]
  - Gastric disorder [Unknown]
